FAERS Safety Report 20735352 (Version 3)
Quarter: 2022Q4

REPORT INFORMATION
  Report Type: Spontaneous
  Country: FR (occurrence: FR)
  Receive Date: 20220421
  Receipt Date: 20221213
  Transmission Date: 20230113
  Serious: Yes (Other)
  Sender: FDA-Public Use
  Company Number: FR-GLAXOSMITHKLINE-FR2022EME066575

PATIENT

DRUGS (12)
  1. BELANTAMAB MAFODOTIN [Suspect]
     Active Substance: BELANTAMAB MAFODOTIN
     Indication: Plasma cell myeloma
     Dosage: 2.5 MG/KG, CYC (EVERY 3 WEEKS)
     Route: 042
     Dates: start: 20210423
  2. BELANTAMAB MAFODOTIN [Suspect]
     Active Substance: BELANTAMAB MAFODOTIN
     Dosage: 2.5 MG/KG, CYC (EVERY 3 WEEKS)
     Route: 042
     Dates: start: 20210514
  3. BELANTAMAB MAFODOTIN [Suspect]
     Active Substance: BELANTAMAB MAFODOTIN
     Dosage: 2.5 MG/KG, CYC (EVERY 3 WEEKS)
     Route: 042
     Dates: start: 20210604
  4. BELANTAMAB MAFODOTIN [Suspect]
     Active Substance: BELANTAMAB MAFODOTIN
     Dosage: 1.9 MG/KG, CYC (EVERY 3 WEEKS)
     Route: 042
     Dates: start: 20210712
  5. BELANTAMAB MAFODOTIN [Suspect]
     Active Substance: BELANTAMAB MAFODOTIN
     Dosage: 1.9 MG/KG, CYC (EVERY 3 WEEKS)
     Route: 042
     Dates: start: 20210809
  6. BELANTAMAB MAFODOTIN [Suspect]
     Active Substance: BELANTAMAB MAFODOTIN
     Dosage: 1.9 MG/KG, CYC (EVERY 3 WEEKS)
     Route: 042
     Dates: start: 20210907
  7. BELANTAMAB MAFODOTIN [Suspect]
     Active Substance: BELANTAMAB MAFODOTIN
     Dosage: 1.9 MG/KG, CYC (EVERY 3 WEEKS)
     Route: 042
     Dates: start: 20211102
  8. BELANTAMAB MAFODOTIN [Suspect]
     Active Substance: BELANTAMAB MAFODOTIN
     Dosage: 1.9 MG/KG, CYC (EVERY 3 WEEKS)
     Route: 042
     Dates: start: 20211203
  9. BELANTAMAB MAFODOTIN [Suspect]
     Active Substance: BELANTAMAB MAFODOTIN
     Dosage: 1.9 MG/KG, CYC (EVERY 3 WEEKS)
     Route: 042
     Dates: start: 20220104
  10. BELANTAMAB MAFODOTIN [Suspect]
     Active Substance: BELANTAMAB MAFODOTIN
     Dosage: 1.9 MG/KG, CYC (EVERY 3 WEEKS)
     Route: 042
     Dates: start: 20220201
  11. BELANTAMAB MAFODOTIN [Suspect]
     Active Substance: BELANTAMAB MAFODOTIN
     Dosage: 1.9 MG/KG, CYC (EVERY 3 WEEKS)
     Route: 042
     Dates: start: 20220323
  12. TOBRADEX [Concomitant]
     Active Substance: DEXAMETHASONE\TOBRAMYCIN
     Indication: Product used for unknown indication
     Dosage: UNK

REACTIONS (3)
  - Lung disorder [Recovered/Resolved]
  - Femur fracture [Unknown]
  - Keratopathy [Unknown]

NARRATIVE: CASE EVENT DATE: 20210604
